FAERS Safety Report 7177066-1 (Version None)
Quarter: 2010Q4

REPORT INFORMATION
  Report Type: 
  Country: None (occurrence: None)
  Receive Date: 20101220
  Receipt Date: 20101115
  Transmission Date: 20110411
  Serious: No
  Sender: FDA-Public Use
  Company Number: US-JNJFOC-20101105086

PATIENT
  Sex: Female

DRUGS (3)
  1. INVEGA [Suspect]
     Indication: PRODUCT USED FOR UNKNOWN INDICATION
     Dosage: 2 6 MG TABS DAILY IN MORNING
     Route: 048
  2. AMBIEN [Concomitant]
     Indication: INSOMNIA
     Route: 048
  3. ATIVAN [Concomitant]
     Indication: ANXIETY
     Dosage: 0.5 MG - 1 MG EVERY 4-6 HOURS AS NEEDED
     Route: 048

REACTIONS (3)
  - MALAISE [None]
  - MENTAL DISORDER [None]
  - TREATMENT NONCOMPLIANCE [None]
